FAERS Safety Report 19882101 (Version 1)
Quarter: 2021Q3

REPORT INFORMATION
  Report Type: Spontaneous
  Country: IN (occurrence: IN)
  Receive Date: 20210924
  Receipt Date: 20210924
  Transmission Date: 20211014
  Serious: Yes (Life-Threatening, Other)
  Sender: FDA-Public Use
  Company Number: IN-PFIZER INC-2018433252

PATIENT
  Age: 61 Year
  Sex: Male

DRUGS (8)
  1. MYCOPHENOLATE MOFETIL. [Concomitant]
     Active Substance: MYCOPHENOLATE MOFETIL
     Dosage: 500 MG, TWICE DAILY
  2. MYCOPHENOLATE MOFETIL. [Concomitant]
     Active Substance: MYCOPHENOLATE MOFETIL
     Indication: IMMUNOSUPPRESSANT DRUG THERAPY
     Dosage: 1 G, TWICE DAILY
  3. ANTILYMPHOCYTE IMMUNOGLOBULINS [Suspect]
     Active Substance: THYMOCYTE IMMUNE GLOBULIN NOS
     Indication: IMMUNOSUPPRESSANT DRUG THERAPY
     Dosage: 3 MG/KG, UNK
  4. TACROLIMUS. [Suspect]
     Active Substance: TACROLIMUS
     Indication: IMMUNOSUPPRESSANT DRUG THERAPY
     Dosage: 0.1 MG/KG, UNK
  5. TACROLIMUS. [Suspect]
     Active Substance: TACROLIMUS
     Dosage: BETWEEN 3 AND 6 NG/ML AFTER 3 MONTHS
  6. PREDNISOLONE. [Concomitant]
     Active Substance: PREDNISOLONE
     Dosage: 7.5 MG, 1X/DAY
  7. PREDNISOLONE. [Concomitant]
     Active Substance: PREDNISOLONE
     Dosage: UNK, INCREASED DOSE
  8. PREDNISOLONE. [Concomitant]
     Active Substance: PREDNISOLONE
     Indication: IMMUNOSUPPRESSANT DRUG THERAPY
     Dosage: 0.5 MG/KG, UNK

REACTIONS (9)
  - Urinary tract infection bacterial [Recovering/Resolving]
  - Escherichia infection [Unknown]
  - Epstein-Barr virus associated lymphoma [Recovering/Resolving]
  - Lymphoproliferative disorder [Recovering/Resolving]
  - Non-Hodgkin^s lymphoma [Recovering/Resolving]
  - Tuberculoma of central nervous system [Recovering/Resolving]
  - Diffuse large B-cell lymphoma [Recovering/Resolving]
  - Lymphadenitis bacterial [Recovering/Resolving]
  - Extrapulmonary tuberculosis [Recovered/Resolved]
